FAERS Safety Report 21581583 (Version 1)
Quarter: 2022Q4

REPORT INFORMATION
  Report Type: Report from Study
  Country: US (occurrence: US)
  Receive Date: 20221111
  Receipt Date: 20221111
  Transmission Date: 20230112
  Serious: Yes (Other)
  Sender: FDA-Public Use
  Company Number: US-ABBVIE-4195098

PATIENT
  Sex: Female

DRUGS (2)
  1. HUMIRA [Suspect]
     Active Substance: ADALIMUMAB
     Indication: Rheumatoid arthritis
     Route: 058
  2. Pfizer BioNTech Covid vaccine [Concomitant]
     Indication: COVID-19 immunisation
     Route: 030

REACTIONS (4)
  - Renal cancer [Recovering/Resolving]
  - Fall [Recovering/Resolving]
  - Rotator cuff syndrome [Recovering/Resolving]
  - Joint range of motion decreased [Recovering/Resolving]

NARRATIVE: CASE EVENT DATE: 20220101
